FAERS Safety Report 7963696-3 (Version None)
Quarter: 2011Q4

REPORT INFORMATION
  Report Type: 
  Country: None (occurrence: None)
  Receive Date: 20111208
  Receipt Date: 20111205
  Transmission Date: 20120403
  Serious: Yes (Other)
  Sender: FDA-Public Use
  Company Number: SG-BAYER-2011-116429

PATIENT
  Age: 41 Year
  Sex: Female

DRUGS (1)
  1. CIPROFLOXACIN HCL [Suspect]

REACTIONS (2)
  - DRUG ERUPTION [None]
  - ANGIOEDEMA [None]
